FAERS Safety Report 9744803 (Version 1)
Quarter: 2013Q4

REPORT INFORMATION
  Report Type: Spontaneous
  Country: CA (occurrence: CA)
  Receive Date: 20131210
  Receipt Date: 20131210
  Transmission Date: 20140711
  Serious: Yes (Other)
  Sender: FDA-Public Use
  Company Number: CA-AMGEN-CANSP2013086555

PATIENT
  Age: 73 Year
  Sex: Female
  Weight: 91 kg

DRUGS (16)
  1. ENBREL [Suspect]
     Indication: PRODUCT USED FOR UNKNOWN INDICATION
     Dosage: 50 MG, QWK
     Route: 058
  2. METHOTREXATE [Suspect]
     Indication: PRODUCT USED FOR UNKNOWN INDICATION
     Dosage: UNK
     Route: 065
  3. PLAQUENIL /00072602/ [Suspect]
     Indication: PRODUCT USED FOR UNKNOWN INDICATION
     Dosage: UNK
     Route: 065
  4. AMLODIPINE [Concomitant]
     Dosage: UNK
  5. ASA [Concomitant]
     Dosage: UNK
  6. CRANBERRY                          /01512301/ [Concomitant]
     Dosage: UNK
  7. DEXILANT [Concomitant]
     Dosage: UNK
  8. DURAGESIC MAT [Concomitant]
     Dosage: UNK
  9. EUROFER                            /00023503/ [Concomitant]
     Dosage: UNK
  10. IRBESARTAN [Concomitant]
     Dosage: UNK
  11. LIPITOR [Concomitant]
     Dosage: UNK
  12. PANTOPRAZOLE [Concomitant]
     Dosage: UNK
  13. SENOKOT                            /00142201/ [Concomitant]
     Dosage: UNK
  14. TEARS NATURALE                     /00134201/ [Concomitant]
     Dosage: UNK
     Route: 047
  15. TYLENOL WITH CODEINE NO.3 [Concomitant]
     Dosage: UNK
  16. VITAMIN B COMPLEX [Concomitant]
     Dosage: UNK

REACTIONS (6)
  - Pulmonary fibrosis [Recovering/Resolving]
  - Constipation [Recovering/Resolving]
  - Eye disorder [Recovering/Resolving]
  - Pain [Recovering/Resolving]
  - Nasopharyngitis [Recovering/Resolving]
  - Herpes zoster [Recovering/Resolving]
